FAERS Safety Report 6160460-5 (Version None)
Quarter: 2009Q2

REPORT INFORMATION
  Report Type: 
  Country: None (occurrence: None)
  Receive Date: 20090420
  Receipt Date: 20090409
  Transmission Date: 20091009
  Serious: Yes (Hospitalization)
  Sender: FDA-Public Use
  Company Number: US-JNJFOC-20090402342

PATIENT
  Sex: Female
  Weight: 47.4 kg

DRUGS (10)
  1. INFLIXIMAB [Suspect]
     Route: 042
  2. INFLIXIMAB [Suspect]
     Route: 042
  3. INFLIXIMAB [Suspect]
     Route: 042
  4. INFLIXIMAB [Suspect]
     Route: 042
  5. INFLIXIMAB [Suspect]
     Dosage: RECEIVED INDUCTION DOSING AT WEEK 0, 2, AND 6 AND THEN MAINTENANCE OF EVERY 8 WEEKS
     Route: 042
  6. INFLIXIMAB [Suspect]
     Route: 042
  7. INFLIXIMAB [Suspect]
     Indication: CROHN'S DISEASE
     Route: 042
  8. ANTIBIOTICS [Concomitant]
     Indication: CROHN'S DISEASE
  9. PREDNISONE [Concomitant]
  10. HUMIRA [Concomitant]
     Dosage: TAKEN AT BASELINE VISIT 1

REACTIONS (2)
  - ABSCESS INTESTINAL [None]
  - LARGE INTESTINE PERFORATION [None]
